FAERS Safety Report 24254349 (Version 3)
Quarter: 2024Q3

REPORT INFORMATION
  Report Type: Report from Study
  Country: FR (occurrence: FR)
  Receive Date: 20240827
  Receipt Date: 20240930
  Transmission Date: 20241017
  Serious: Yes (Hospitalization)
  Sender: ALNYLAM PHARMACEUTICALS
  Company Number: FR-ALNYLAM PHARMACEUTICALS, INC.-ALN-2024-004727

PATIENT

DRUGS (1)
  1. AMVUTTRA [Suspect]
     Active Substance: VUTRISIRAN
     Indication: Amyloidosis
     Dosage: 25 MILLIGRAM (ONE PRE-FILLED SYRINGE)
     Route: 058
     Dates: start: 20240523, end: 20240523

REACTIONS (3)
  - Abdominal operation [Unknown]
  - Gastric neoplasm [Unknown]
  - Therapy interrupted [Unknown]
